FAERS Safety Report 7507418-9 (Version None)
Quarter: 2011Q2

REPORT INFORMATION
  Report Type: 
  Country: None (occurrence: None)
  Receive Date: 20110526
  Receipt Date: 20110517
  Transmission Date: 20111010
  Serious: Yes (Hospitalization)
  Sender: FDA-Public Use
  Company Number: US-ELI_LILLY_AND_COMPANY-US201012006388

PATIENT
  Sex: Female

DRUGS (13)
  1. SIMVASTATIN [Concomitant]
  2. MULTI-VITAMIN [Concomitant]
  3. CARISOPRODOL [Concomitant]
  4. NEXIUM [Concomitant]
  5. FORTEO [Suspect]
     Indication: OSTEOPOROSIS
     Dosage: 20 UG, DAILY (1/D)
     Route: 065
     Dates: start: 20101201
  6. VITAMIN D [Concomitant]
  7. ACETAMINOPHEN [Concomitant]
  8. FORTEO [Suspect]
     Dosage: 20 UG, DAILY (1/D)
  9. FORTEO [Suspect]
     Dosage: 20 UG, DAILY (1/D)
  10. ASPIRIN [Concomitant]
  11. FORTEO [Suspect]
     Dosage: 20 UG, QD
  12. AVAPRO [Concomitant]
  13. MUSCLE RELAXANTS [Concomitant]

REACTIONS (14)
  - PAIN IN EXTREMITY [None]
  - PAIN [None]
  - DYSGEUSIA [None]
  - WHITE BLOOD CELL COUNT INCREASED [None]
  - RIB FRACTURE [None]
  - HAEMORRHAGE [None]
  - FEELING ABNORMAL [None]
  - INJECTION SITE HAEMORRHAGE [None]
  - ABDOMINAL PAIN UPPER [None]
  - INJURY ASSOCIATED WITH DEVICE [None]
  - FLANK PAIN [None]
  - KIDNEY INFECTION [None]
  - BONE PAIN [None]
  - TENDERNESS [None]
